FAERS Safety Report 10690496 (Version 1)
Quarter: 2015Q1

REPORT INFORMATION
  Report Type: Spontaneous
  Country: US (occurrence: None)
  Receive Date: 20150102
  Receipt Date: 20150102
  Transmission Date: 20150720
  Serious: Yes (Disabling, Other)
  Sender: FDA-Public Use
  Company Number: None

PATIENT
  Age: 54 Year
  Sex: Male
  Weight: 63.5 kg

DRUGS (1)
  1. CIALIS [Suspect]
     Active Substance: TADALAFIL
     Indication: ERECTILE DYSFUNCTION
     Dosage: 1 PILL, AS NEEDED
     Route: 048
     Dates: start: 20140624, end: 20140624

REACTIONS (2)
  - Painful erection [None]
  - Blindness unilateral [None]

NARRATIVE: CASE EVENT DATE: 20140627
